FAERS Safety Report 13834934 (Version 12)
Quarter: 2017Q4

REPORT INFORMATION
  Report Type: Spontaneous
  Country: US (occurrence: US)
  Receive Date: 20170804
  Receipt Date: 20171027
  Transmission Date: 20180320
  Serious: Yes (Other)
  Sender: FDA-Public Use
  Company Number: US-ALEXION PHARMACEUTICALS INC.-A201708757

PATIENT
  Sex: Female

DRUGS (3)
  1. STRENSIQ [Suspect]
     Active Substance: ASFOTASE ALFA
     Indication: HYPOPHOSPHATASIA
     Dosage: UNK, TIW
     Route: 058
     Dates: start: 20160220
  2. STRENSIQ [Suspect]
     Active Substance: ASFOTASE ALFA
     Dosage: UNK, TIW
     Route: 058
  3. VITAMIN D                          /00107901/ [Concomitant]
     Active Substance: ERGOCALCIFEROL
     Indication: PRODUCT USED FOR UNKNOWN INDICATION
     Dosage: 8000 IU, QW
     Route: 065

REACTIONS (22)
  - Ocular hyperaemia [Not Recovered/Not Resolved]
  - Visual impairment [Unknown]
  - Anaemia [Not Recovered/Not Resolved]
  - Connective tissue disorder [Unknown]
  - Blood alkaline phosphatase decreased [Not Recovered/Not Resolved]
  - Conjunctivitis viral [Unknown]
  - Episcleritis [Not Recovered/Not Resolved]
  - Neck pain [Unknown]
  - Musculoskeletal discomfort [Unknown]
  - Skin ulcer [Unknown]
  - Pain in extremity [Not Recovered/Not Resolved]
  - Back pain [Unknown]
  - Fatigue [Unknown]
  - Inflammatory marker increased [Unknown]
  - Photophobia [Unknown]
  - Pyrexia [Recovered/Resolved]
  - Viral infection [Unknown]
  - Autoimmune disorder [Unknown]
  - Contusion [Unknown]
  - Movement disorder [Not Recovered/Not Resolved]
  - Pain [Unknown]
  - Scar [Unknown]

NARRATIVE: CASE EVENT DATE: 20170713
